FAERS Safety Report 12369070 (Version 2)
Quarter: 2016Q2

REPORT INFORMATION
  Report Type: Report from Study
  Country: FR (occurrence: FR)
  Receive Date: 20160513
  Receipt Date: 20160523
  Transmission Date: 20160815
  Serious: Yes (Other)
  Sender: FDA-Public Use
  Company Number: FR-009507513-1605FRA005722

PATIENT

DRUGS (1)
  1. NORFLOXACIN [Suspect]
     Active Substance: NORFLOXACIN
     Route: 048

REACTIONS (1)
  - Retinal detachment [Unknown]
